FAERS Safety Report 4469105-3 (Version None)
Quarter: 2004Q4

REPORT INFORMATION
  Report Type: 
  Country: None (occurrence: None)
  Receive Date: 20041005
  Receipt Date: 20040921
  Transmission Date: 20050328
  Serious: Yes (Hospitalization)
  Sender: FDA-Public Use
  Company Number: 6010666

PATIENT
  Age: 81 Year
  Sex: Female

DRUGS (7)
  1. BISOPROLOL FUMARATE [Suspect]
     Indication: HYPERTENSION
     Dosage: 1,00 DOSAGE FORMS (1 DOSAGE FORMS, 1 IN 1 D)
     Route: 048
     Dates: start: 20030801, end: 20040113
  2. KARDEGIC (ACETYLSALYCILATE LYSINE) [Concomitant]
  3. EUPRESSYL (URAPIDIL) [Concomitant]
  4. LASIX [Concomitant]
  5. COVERSYL (PERINDOPRIL) [Concomitant]
  6. DIAMICRON (GLICLAZIDE) [Concomitant]
  7. PAROXETINE HCL [Concomitant]

REACTIONS (4)
  - ANXIETY [None]
  - FATIGUE [None]
  - MALAISE [None]
  - PANIC ATTACK [None]
